FAERS Safety Report 7861728-4 (Version None)
Quarter: 2011Q4

REPORT INFORMATION
  Report Type: 
  Country: None (occurrence: None)
  Receive Date: 20111027
  Receipt Date: 20111020
  Transmission Date: 20120403
  Serious: Yes (Other)
  Sender: FDA-Public Use
  Company Number: GB-MERCK-1110GBR00083

PATIENT
  Age: 80 Year
  Sex: Female

DRUGS (4)
  1. STATIN (UNSPECIFIED) [Concomitant]
     Route: 065
  2. SINEMET [Suspect]
     Route: 048
  3. BENDROFLUMETHIAZIDE [Concomitant]
     Route: 065
  4. ASPIRIN [Concomitant]
     Route: 065

REACTIONS (2)
  - GASTROINTESTINAL DISORDER [None]
  - NEOPLASM MALIGNANT [None]
